FAERS Safety Report 8275780-8 (Version None)
Quarter: 2012Q2

REPORT INFORMATION
  Report Type: 
  Country: None (occurrence: None)
  Receive Date: 20120410
  Receipt Date: 20120410
  Transmission Date: 20120825
  Serious: Yes (Hospitalization)
  Sender: FDA-Public Use
  Company Number: None

PATIENT
  Age: 80 Year
  Sex: Male
  Weight: 102 kg

DRUGS (2)
  1. SULFAMETHOXAZOLE AND TRIMETHOPRIM [Suspect]
     Indication: WOUND INFECTION
     Dosage: 2 TAB BID PO
     Route: 048
     Dates: start: 20110718, end: 20110726
  2. SULFAMETHOXAZOLE AND TRIMETHOPRIM [Suspect]
     Indication: OSTEOMYELITIS
     Dosage: 2 TAB BID PO
     Route: 048
     Dates: start: 20110718, end: 20110726

REACTIONS (6)
  - HYPOTENSION [None]
  - BRADYCARDIA [None]
  - SWOLLEN TONGUE [None]
  - DIZZINESS [None]
  - VOMITING [None]
  - RENAL FAILURE ACUTE [None]
